FAERS Safety Report 7346972-7 (Version None)
Quarter: 2011Q1

REPORT INFORMATION
  Report Type: 
  Country: None (occurrence: None)
  Receive Date: 20110311
  Receipt Date: 20110225
  Transmission Date: 20110831
  Serious: Yes (Congenital Anomaly)
  Sender: FDA-Public Use
  Company Number: PHHY2011IT18875

PATIENT

DRUGS (4)
  1. DICLOFENAC [Suspect]
     Indication: PAIN
     Dosage: UNK
     Route: 064
  2. CIPROFLOXACIN [Suspect]
     Dosage: UNK
     Route: 064
  3. PROGESTIN INJ [Suspect]
     Dosage: UNK
     Route: 064
  4. FLUCONAZOLE [Suspect]
     Dosage: UNK
     Route: 064

REACTIONS (3)
  - GASTROSCHISIS [None]
  - DRUG EXPOSURE DURING PREGNANCY [None]
  - CONGENITAL SCOLIOSIS [None]
